FAERS Safety Report 23469952 (Version 1)
Quarter: 2024Q1

REPORT INFORMATION
  Report Type: Spontaneous
  Country: CA (occurrence: CA)
  Receive Date: 20240202
  Receipt Date: 20240202
  Transmission Date: 20240410
  Serious: Yes (Death, Hospitalization, Other)
  Sender: FDA-Public Use
  Company Number: CA-IGSA-BIG0025033

PATIENT
  Age: 41 Year
  Sex: Female
  Weight: 102 kg

DRUGS (13)
  1. IGIVNEX [Suspect]
     Active Substance: HUMAN IMMUNOGLOBULIN G
     Indication: Immune thrombocytopenia
     Dosage: 80 GRAM, TOTAL
     Route: 042
     Dates: start: 20230716, end: 20230716
  2. IGIVNEX [Suspect]
     Active Substance: HUMAN IMMUNOGLOBULIN G
     Dosage: 80 GRAM, TOTAL
     Route: 042
     Dates: start: 20230713, end: 20230713
  3. IGIVNEX [Suspect]
     Active Substance: HUMAN IMMUNOGLOBULIN G
     Dosage: 80 GRAM, TOTAL
     Route: 042
     Dates: start: 20230707, end: 20230707
  4. GAMUNEX [Suspect]
     Active Substance: HUMAN IMMUNOGLOBULIN G
     Indication: Immune thrombocytopenia
     Dosage: 80 GRAM, SINGLE
     Route: 042
  5. GAMUNEX [Suspect]
     Active Substance: HUMAN IMMUNOGLOBULIN G
     Dosage: 80 GRAM, SINGLE
     Route: 042
  6. GAMUNEX [Suspect]
     Active Substance: HUMAN IMMUNOGLOBULIN G
     Dosage: 80 GRAM, SINGLE
     Route: 042
  7. PRIVIGEN [Suspect]
     Active Substance: HUMAN IMMUNOGLOBULIN G
     Indication: Immune thrombocytopenia
     Dosage: 100 GRAM, SINGLE
     Route: 042
  8. DEXAMETHASONE [Concomitant]
     Active Substance: DEXAMETHASONE
     Indication: Immune thrombocytopenia
     Dosage: 40.0 MILLIGRAM
  9. FOLIC ACID [Concomitant]
     Active Substance: FOLIC ACID
     Dosage: UNK
  10. ALBUMIN (HUMAN)  5% SOLUTION, USP [Concomitant]
     Route: 042
  11. HUMAN PLASMA [Concomitant]
     Active Substance: HUMAN PLASMA
  12. PLATELETS [Concomitant]
     Active Substance: HUMAN PLATELET, ALLOGENIC
  13. HUMAN RED BLOOD CELL [Concomitant]
     Active Substance: HUMAN RED BLOOD CELL

REACTIONS (10)
  - Delayed haemolytic transfusion reaction [Recovering/Resolving]
  - Coombs direct test positive [Recovering/Resolving]
  - Anti A antibody positive [Recovering/Resolving]
  - Anti B antibody positive [Recovering/Resolving]
  - Haptoglobin decreased [Recovering/Resolving]
  - Spherocytic anaemia [Recovering/Resolving]
  - Acute kidney injury [Fatal]
  - Haemolysis [Fatal]
  - Hepatosplenomegaly [Fatal]
  - Red blood cell spherocytes present [Recovering/Resolving]

NARRATIVE: CASE EVENT DATE: 20230717
